FAERS Safety Report 7369290-X (Version None)
Quarter: 2011Q1

REPORT INFORMATION
  Report Type: 
  Country: None (occurrence: None)
  Receive Date: 20110323
  Receipt Date: 20110315
  Transmission Date: 20110831
  Serious: Yes (Hospitalization, Congenital Anomaly)
  Sender: FDA-Public Use
  Company Number: A0919457A

PATIENT
  Sex: Female
  Weight: 3.1 kg

DRUGS (3)
  1. PAXIL [Suspect]
     Route: 064
  2. PRENATAL VITAMINS [Concomitant]
  3. IRON [Concomitant]

REACTIONS (5)
  - ATRIAL SEPTAL DEFECT [None]
  - CONGENITAL PULMONARY HYPERTENSION [None]
  - ANOMALOUS PULMONARY VENOUS CONNECTION [None]
  - PATENT DUCTUS ARTERIOSUS [None]
  - DRUG EXPOSURE DURING PREGNANCY [None]
